FAERS Safety Report 15349985 (Version 1)
Quarter: 2018Q3

REPORT INFORMATION
  Report Type: Spontaneous
  Country: IN (occurrence: IN)
  Receive Date: 20180904
  Receipt Date: 20180904
  Transmission Date: 20181010
  Serious: Yes (Other)
  Sender: FDA-Public Use
  Company Number: IN-ANIPHARMA-2018-IN-000048

PATIENT
  Age: 10 Year
  Sex: Male

DRUGS (1)
  1. FLUVOXAMINE (NON?SPECIFIC) [Suspect]
     Active Substance: FLUVOXAMINE
     Indication: OBSESSIVE-COMPULSIVE DISORDER
     Dosage: 100 MG DAILY
     Route: 048

REACTIONS (2)
  - Papilloedema [Unknown]
  - Intracranial pressure increased [Unknown]
